FAERS Safety Report 5424669-8 (Version None)
Quarter: 2007Q3

REPORT INFORMATION
  Report Type: 
  Country: None (occurrence: None)
  Receive Date: 20070824
  Receipt Date: 20070816
  Transmission Date: 20080115
  Serious: Yes (Hospitalization)
  Sender: FDA-Public Use
  Company Number: PHEH2007US11220

PATIENT
  Age: 55 Year
  Sex: Female

DRUGS (1)
  1. ZELNORM [Suspect]

REACTIONS (6)
  - CARDIAC FAILURE CONGESTIVE [None]
  - CHEST PAIN [None]
  - DYSPNOEA [None]
  - EPISTAXIS [None]
  - LOSS OF CONSCIOUSNESS [None]
  - MALAISE [None]
